FAERS Safety Report 5007236-X (Version None)
Quarter: 2006Q1

REPORT INFORMATION
  Report Type: 
  Country: None (occurrence: None)
  Receive Date: 20060320
  Receipt Date: 20060320
  Transmission Date: 20060701
  Serious: Yes (Other)
  Sender: FDA-Public Use
  Company Number: 2005-03-0270

PATIENT
  Age: 37 Year
  Sex: Female
  Weight: 81.1939 kg

DRUGS (3)
  1. PEG-INTRON [Suspect]
     Indication: HEPATITIS C
     Dosage: 126 MCG QW, SUBCUTANEOUS
     Route: 058
     Dates: start: 20040420, end: 20040930
  2. RIBAVIRIN [Suspect]
     Indication: HEPATITIS C
     Dosage: 1200 MG QD, ORAL
     Route: 048
     Dates: start: 20040420, end: 20040930
  3. SUDAFED (PSEUDOEPHEDRONE HCL) [Concomitant]

REACTIONS (2)
  - ABORTION SPONTANEOUS [None]
  - DRUG EXPOSURE DURING PREGNANCY [None]
